FAERS Safety Report 5287281-X (Version None)
Quarter: 2007Q1

REPORT INFORMATION
  Report Type: 
  Country: None (occurrence: None)
  Receive Date: 20070329
  Receipt Date: 20070314
  Transmission Date: 20070707
  Serious: Yes (Hospitalization)
  Sender: FDA-Public Use
  Company Number: 8021325

PATIENT
  Age: 17 Year
  Sex: Male

DRUGS (2)
  1. KEPPRA [Suspect]
     Indication: COMPLEX PARTIAL SEIZURES
     Dosage: 1500 MG 2/D PO
     Route: 048
     Dates: start: 20060801
  2. KEPPRA [Suspect]
     Indication: GRAND MAL CONVULSION
     Dosage: 1500 MG 2/D PO
     Route: 048
     Dates: start: 20060801

REACTIONS (1)
  - AGGRESSION [None]
